FAERS Safety Report 7492176-7 (Version None)
Quarter: 2011Q2

REPORT INFORMATION
  Report Type: 
  Country: None (occurrence: None)
  Receive Date: 20110519
  Receipt Date: 20110509
  Transmission Date: 20111010
  Serious: Yes (Hospitalization)
  Sender: FDA-Public Use
  Company Number: US-GILEAD-2011-0038884

PATIENT
  Sex: Female

DRUGS (4)
  1. ATRIPLA [Suspect]
     Indication: HIV INFECTION
  2. TRUVADA [Suspect]
     Indication: HIV INFECTION
  3. NORVIR [Suspect]
     Indication: HIV INFECTION
  4. PREZISTA [Suspect]
     Indication: HIV INFECTION

REACTIONS (3)
  - OVERDOSE [None]
  - HEPATIC FAILURE [None]
  - HYPERBILIRUBINAEMIA [None]
